FAERS Safety Report 7563922-9 (Version None)
Quarter: 2011Q2

REPORT INFORMATION
  Report Type: 
  Country: None (occurrence: None)
  Receive Date: 20110622
  Receipt Date: 20110614
  Transmission Date: 20111010
  Serious: Yes (Life-Threatening, Other)
  Sender: FDA-Public Use
  Company Number: JP-CEPHALON-2011002726

PATIENT
  Age: 58 Year
  Sex: Male

DRUGS (12)
  1. WARFARIN SODIUM [Concomitant]
     Dates: start: 20110411, end: 20110424
  2. BENDAMUSTINE HCL [Suspect]
     Indication: B-CELL LYMPHOMA
     Route: 042
     Dates: start: 20110414, end: 20110415
  3. GRANISETRON HCL [Concomitant]
  4. VALSARTAN [Concomitant]
     Dates: start: 20110411, end: 20110428
  5. MECOBALAMIN [Concomitant]
     Dates: start: 20110411, end: 20110428
  6. LANSOPRAZOLE [Concomitant]
     Dates: start: 20110411, end: 20110428
  7. URSODIOL [Concomitant]
     Dates: start: 20110411, end: 20110428
  8. METHYLPREDNISOLONE SODIUM SUCCINATE [Concomitant]
     Dates: start: 20110426, end: 20110513
  9. PREDNISOLONE [Concomitant]
     Dates: start: 20110411, end: 20110428
  10. RITUXIMAB [Suspect]
     Indication: B-CELL LYMPHOMA
     Dates: start: 20110413, end: 20110413
  11. NIFEDIPINE [Concomitant]
     Dates: start: 20110411, end: 20110428
  12. POTASSIUM CHLORIDE [Concomitant]
     Dates: start: 20110411, end: 20110428

REACTIONS (8)
  - LYMPHOCYTE COUNT DECREASED [None]
  - PNEUMONITIS [None]
  - DISEASE PROGRESSION [None]
  - PNEUMOTHORAX [None]
  - HISTIOCYTOSIS HAEMATOPHAGIC [None]
  - CHOLANGITIS [None]
  - PANCREATITIS [None]
  - CYTOMEGALOVIRUS INFECTION [None]
